FAERS Safety Report 21063115 (Version 1)
Quarter: 2022Q3

REPORT INFORMATION
  Report Type: Spontaneous
  Country: FR (occurrence: FR)
  Receive Date: 20220711
  Receipt Date: 20220711
  Transmission Date: 20221027
  Serious: Yes (Hospitalization, Other)
  Sender: FDA-Public Use
  Company Number: FR-CELLTRION INC.-2022FR010655

PATIENT

DRUGS (3)
  1. RITUXIMAB [Suspect]
     Active Substance: RITUXIMAB
     Indication: Epstein-Barr virus infection reactivation
     Dosage: 1 INJECTION (ADDITIONAL INFORMATION ON DRUG (CODED): OFF LABEL USE)
     Dates: start: 201912, end: 201912
  2. CASIRIVIMAB\IMDEVIMAB [Suspect]
     Active Substance: CASIRIVIMAB\IMDEVIMAB
     Indication: COVID-19
     Dosage: 2.4 G, ON DAY 404 (ADDITIONAL INFORMATION ON DRUG (CODED): OFF LABEL USE)
  3. CASIRIVIMAB\IMDEVIMAB [Suspect]
     Active Substance: CASIRIVIMAB\IMDEVIMAB
     Dosage: 2.4 G, ON DAYS 370 (ADDITIONAL INFORMATION ON DRUG (CODED): OFF LABEL USE)

REACTIONS (2)
  - COVID-19 [Recovered/Resolved]
  - Off label use [Unknown]
